FAERS Safety Report 7234492-X (Version None)
Quarter: 2011Q1

REPORT INFORMATION
  Report Type: 
  Country: None (occurrence: None)
  Receive Date: 20110119
  Receipt Date: 20110112
  Transmission Date: 20110831
  Serious: Yes (Other)
  Sender: FDA-Public Use
  Company Number: US-AMGEN-USASP2011002230

PATIENT

DRUGS (2)
  1. ENBREL [Suspect]
     Indication: PSORIASIS
     Dosage: 25 MG, 2 TIMES/WK
     Dates: start: 20060401
  2. ENBREL [Suspect]
     Indication: PSORIATIC ARTHROPATHY

REACTIONS (8)
  - FEELING HOT [None]
  - RASH ERYTHEMATOUS [None]
  - NAIL PSORIASIS [None]
  - PSORIATIC ARTHROPATHY [None]
  - NAIL DISCOLOURATION [None]
  - OEDEMA PERIPHERAL [None]
  - WOUND COMPLICATION [None]
  - FOOT DEFORMITY [None]
